FAERS Safety Report 24541336 (Version 1)
Quarter: 2024Q4

REPORT INFORMATION
  Report Type: Spontaneous
  Country: US (occurrence: US)
  Receive Date: 20241023
  Receipt Date: 20241023
  Transmission Date: 20250114
  Serious: Yes (Other)
  Sender: APELLIS PHARMACEUTICALS
  Company Number: US-APELLIS PHARMACEUTICALS-APL-2024-004292

PATIENT

DRUGS (4)
  1. SYFOVRE [Suspect]
     Active Substance: PEGCETACOPLAN
     Indication: Dry age-related macular degeneration
     Dosage: UNK, OS, EVERY OTH MONTH
     Route: 031
     Dates: start: 20230523
  2. SYFOVRE [Suspect]
     Active Substance: PEGCETACOPLAN
     Dosage: OS, 2ND INJECTION
     Dates: start: 202307
  3. SYFOVRE [Suspect]
     Active Substance: PEGCETACOPLAN
     Dosage: OS, 3RD INJECTION
     Dates: start: 202309
  4. VABYSMO [Concomitant]
     Active Substance: FARICIMAB-SVOA
     Indication: Neovascular age-related macular degeneration
     Dosage: RIGHT EYE

REACTIONS (1)
  - Iridocyclitis [Recovered/Resolved]
